FAERS Safety Report 15835974 (Version 1)
Quarter: 2018Q4

REPORT INFORMATION
  Report Type: Spontaneous
  Country: US (occurrence: US)
  Receive Date: 20181221
  Receipt Date: 20181221
  Transmission Date: 20190205
  Serious: Yes (Hospitalization)
  Sender: FDA-Public Use
  Company Number: None

PATIENT
  Age: 49 Year
  Sex: Male

DRUGS (11)
  1. TADALAFIL. [Concomitant]
     Active Substance: TADALAFIL
  2. ENBREL [Suspect]
     Active Substance: ETANERCEPT
     Indication: PSORIASIS
     Route: 058
     Dates: start: 20171007
  3. OMEPRAZOLE. [Concomitant]
     Active Substance: OMEPRAZOLE
  4. ALLOPURINOL. [Concomitant]
     Active Substance: ALLOPURINOL
  5. OXYCODONE AND ACETAMINOPHEN [Concomitant]
     Active Substance: ACETAMINOPHEN\OXYCODONE HYDROCHLORIDE
  6. NOVOFINE PLS MIS [Concomitant]
  7. PHENTERMINE. [Concomitant]
     Active Substance: PHENTERMINE
  8. TESTOST CYP [Concomitant]
     Active Substance: TESTOSTERONE CYPIONATE
  9. VICTOZA [Concomitant]
     Active Substance: LIRAGLUTIDE
  10. HYDROCHLOROT [Concomitant]
     Active Substance: HYDROCHLOROTHIAZIDE
  11. LOSARTAN. [Concomitant]
     Active Substance: LOSARTAN

REACTIONS (1)
  - Infection [None]

NARRATIVE: CASE EVENT DATE: 20181210
